FAERS Safety Report 11895669 (Version 7)
Quarter: 2016Q3

REPORT INFORMATION
  Report Type: Report from Study
  Country: MX (occurrence: MX)
  Receive Date: 20160107
  Receipt Date: 20160720
  Transmission Date: 20161109
  Serious: Yes (Death, Life-Threatening, Hospitalization, Other)
  Sender: FDA-Public Use
  Company Number: MX-TAKEDA-2016MPI000046

PATIENT
  Age: 68 Year
  Sex: Female
  Weight: 79 kg

DRUGS (3)
  1. DARATUMUMAB [Suspect]
     Active Substance: DARATUMUMAB
     Indication: PLASMA CELL MYELOMA
     Dosage: 16 MG/KG, Q3WEEKS
     Route: 042
     Dates: start: 20151221, end: 20151221
  2. DEXAMETHASONE. [Suspect]
     Active Substance: DEXAMETHASONE
     Indication: PLASMA CELL MYELOMA
     Dosage: 20 MG, UNK
     Route: 042
     Dates: end: 20151214
  3. VELCADE [Suspect]
     Active Substance: BORTEZOMIB
     Indication: PLASMA CELL MYELOMA
     Dosage: 1.3 MG/M2, 2/WEEK
     Route: 058
     Dates: start: 20151224, end: 20151224

REACTIONS (4)
  - Pneumonia [Recovered/Resolved with Sequelae]
  - Respiratory failure [Fatal]
  - Cardiac failure congestive [Recovered/Resolved with Sequelae]
  - Atrial fibrillation [Recovered/Resolved with Sequelae]

NARRATIVE: CASE EVENT DATE: 20151225
